FAERS Safety Report 5528805-4 (Version None)
Quarter: 2007Q4

REPORT INFORMATION
  Report Type: 
  Country: None (occurrence: None)
  Receive Date: 20071119
  Receipt Date: 20070724
  Transmission Date: 20080405
  Serious: No
  Sender: FDA-Public Use
  Company Number: TPA2007A01560

PATIENT
  Age: 50 Year
  Sex: Female
  Weight: 85.2762 kg

DRUGS (3)
  1. ROZEREM [Suspect]
     Indication: INSOMNIA
     Dosage: 8 MG, HS, PER ORAL
     Route: 048
     Dates: start: 20070401
  2. SIMVASTATIN [Concomitant]
  3. DYAZIDE [Concomitant]

REACTIONS (1)
  - INITIAL INSOMNIA [None]
